FAERS Safety Report 12086840 (Version 1)
Quarter: 2016Q1

REPORT INFORMATION
  Report Type: Spontaneous
  Country: US (occurrence: US)
  Receive Date: 20160217
  Receipt Date: 20160217
  Transmission Date: 20160526
  Serious: No
  Sender: FDA-Public Use
  Company Number: US-ALLERGAN-1509617US

PATIENT
  Sex: Female

DRUGS (3)
  1. RESTASIS [Suspect]
     Active Substance: CYCLOSPORINE
     Indication: DRY EYE
     Dosage: UNK
     Route: 047
  2. REFRESH TEARS [Concomitant]
     Active Substance: CARBOXYMETHYLCELLULOSE SODIUM
     Route: 047
  3. LACRISERT [Concomitant]
     Active Substance: HYDROXYPROPYL CELLULOSE
     Dosage: IN THE CORNER OF EYE
     Route: 047

REACTIONS (4)
  - Medication error [Unknown]
  - Punctal plug insertion [Unknown]
  - Eye irritation [Not Recovered/Not Resolved]
  - Dry eye [Recovering/Resolving]
